FAERS Safety Report 5095565-3 (Version None)
Quarter: 2006Q3

REPORT INFORMATION
  Report Type: 
  Country: None (occurrence: None)
  Receive Date: 20060901
  Receipt Date: 20060824
  Transmission Date: 20061208
  Serious: Yes (Hospitalization)
  Sender: FDA-Public Use
  Company Number: JP-ABBOTT-06P-087-0342180-00

PATIENT
  Age: 37 Year
  Sex: Female
  Weight: 46 kg

DRUGS (6)
  1. CLARITHROMYCIN [Suspect]
     Indication: HENOCH-SCHONLEIN PURPURA
     Route: 048
     Dates: start: 20050322, end: 20050327
  2. ASPIRIN/DIALUMINATE [Suspect]
     Indication: PYREXIA
     Route: 048
     Dates: start: 20050322, end: 20050401
  3. BETAMETHASONE/D-CHLORPHENIRAMINE MALEATE [Suspect]
     Indication: HENOCH-SCHONLEIN PURPURA
     Route: 048
     Dates: start: 20050322, end: 20050327
  4. THIAMAZOLE [Suspect]
     Indication: HYPERTHYROIDISM
     Route: 048
     Dates: start: 20050308, end: 20050401
  5. PARACETAMOL [Suspect]
     Indication: PYREXIA
     Route: 048
     Dates: start: 20050319
  6. PARACETAMOL [Suspect]
     Indication: NASOPHARYNGITIS

REACTIONS (3)
  - AGRANULOCYTOSIS [None]
  - TONSILLITIS [None]
  - TONSILLITIS STREPTOCOCCAL [None]
